FAERS Safety Report 6302376-7 (Version None)
Quarter: 2009Q3

REPORT INFORMATION
  Report Type: 
  Country: None (occurrence: None)
  Receive Date: 20090810
  Receipt Date: 20090803
  Transmission Date: 20100115
  Serious: Yes (Other)
  Sender: FDA-Public Use
  Company Number: PHEH2009US08729

PATIENT
  Age: 59 Year
  Sex: Male

DRUGS (1)
  1. STALEVO 100 [Suspect]

REACTIONS (6)
  - CARPAL TUNNEL SYNDROME [None]
  - DEEP BRAIN STIMULATION [None]
  - SHOULDER ARTHROPLASTY [None]
  - SPEECH DISORDER [None]
  - SURGERY [None]
  - TREMOR [None]
